FAERS Safety Report 17936568 (Version 4)
Quarter: 2021Q3

REPORT INFORMATION
  Report Type: Spontaneous
  Country: US (occurrence: US)
  Receive Date: 20200624
  Receipt Date: 20210806
  Transmission Date: 20211014
  Serious: Yes (Other)
  Sender: FDA-Public Use
  Company Number: US-VERTEX PHARMACEUTICALS-2020-011871

PATIENT
  Age: 47 Year
  Sex: Male
  Weight: 81 kg

DRUGS (2)
  1. TRIKAFTA [Suspect]
     Active Substance: ELEXACAFTOR\IVACAFTOR\TEZACAFTOR
     Indication: CYSTIC FIBROSIS
     Dosage: 100 MG ELEXACAFTOR/ 50 MG TEZACAFTOR/ 75 MG IVACAFTOR; 150MG IVACAFTOR, TRADITIONAL DOSING
     Route: 048
     Dates: start: 20191213
  2. TRIKAFTA [Suspect]
     Active Substance: ELEXACAFTOR\IVACAFTOR\TEZACAFTOR
     Dosage: REDUCED DOSE OF 1 ORANGE PILL EVENING, 1 BLUE PILL MORNING
     Route: 048
     Dates: start: 2020

REACTIONS (22)
  - Nocturia [Recovering/Resolving]
  - Paraesthesia [Not Recovered/Not Resolved]
  - Glycosylated haemoglobin decreased [Unknown]
  - Burning sensation [Not Recovered/Not Resolved]
  - Mental impairment [Unknown]
  - Mental disorder [Unknown]
  - Hypoaesthesia [Not Recovered/Not Resolved]
  - Micturition urgency [Recovering/Resolving]
  - Renal pain [Not Recovered/Not Resolved]
  - Peripheral coldness [Not Recovered/Not Resolved]
  - Pallor [Not Recovered/Not Resolved]
  - Blood glucose abnormal [Unknown]
  - Confusional state [Unknown]
  - Disturbance in attention [Unknown]
  - Pancreatic failure [Unknown]
  - Depression [Not Recovered/Not Resolved]
  - Suicidal ideation [Not Recovered/Not Resolved]
  - Swelling [Not Recovered/Not Resolved]
  - Urinary retention [Unknown]
  - Anxiety [Not Recovered/Not Resolved]
  - Intentional self-injury [Unknown]
  - Pollakiuria [Recovering/Resolving]

NARRATIVE: CASE EVENT DATE: 20191213
